FAERS Safety Report 14979565 (Version 1)
Quarter: 2018Q2

REPORT INFORMATION
  Report Type: Spontaneous
  Country: JP (occurrence: JP)
  Receive Date: 20180606
  Receipt Date: 20180606
  Transmission Date: 20180711
  Serious: Yes (Other)
  Sender: FDA-Public Use
  Company Number: JP-ELI_LILLY_AND_COMPANY-JP201805013767

PATIENT
  Age: 62 Year

DRUGS (4)
  1. CYRAMZA [Suspect]
     Active Substance: RAMUCIRUMAB
     Indication: COLON CANCER
     Dosage: UNK
     Route: 041
  2. 5-FU                               /00098801/ [Concomitant]
     Active Substance: FLUOROURACIL
     Indication: COLON CANCER
     Dosage: UNK
  3. IRINOTECAN HYDROCHLORIDE. [Concomitant]
     Active Substance: IRINOTECAN HYDROCHLORIDE
     Indication: COLON CANCER
     Dosage: UNK
  4. LEVOFOLINATE                       /06682103/ [Concomitant]
     Active Substance: LEVOLEUCOVORIN CALCIUM
     Indication: COLON CANCER
     Dosage: UNK

REACTIONS (3)
  - Neutrophil count decreased [Unknown]
  - Deep vein thrombosis [Unknown]
  - Hypertension [Unknown]
